FAERS Safety Report 15335149 (Version 1)
Quarter: 2018Q3

REPORT INFORMATION
  Report Type: Report from Study
  Country: US (occurrence: US)
  Receive Date: 20180830
  Receipt Date: 20180830
  Transmission Date: 20181010
  Serious: Yes (Other)
  Sender: FDA-Public Use
  Company Number: US-SANTOS BIOTECH INDUSTRIES, INC.-2054477

PATIENT
  Age: 65 Year
  Sex: Female

DRUGS (1)
  1. ANASTROZOLE. [Suspect]
     Active Substance: ANASTROZOLE
     Indication: INVASIVE LOBULAR BREAST CARCINOMA

REACTIONS (4)
  - Iritis [None]
  - Uveitis [None]
  - Cystoid macular oedema [None]
  - Amblyopia [None]
